FAERS Safety Report 7004790-3 (Version None)
Quarter: 2010Q3

REPORT INFORMATION
  Report Type: 
  Country: None (occurrence: None)
  Receive Date: 20100921
  Receipt Date: 20100913
  Transmission Date: 20110219
  Serious: Yes (Other)
  Sender: FDA-Public Use
  Company Number: ES-WYE-H17582510

PATIENT

DRUGS (1)
  1. SIROLIMUS [Suspect]
     Indication: PANCREATIC CARCINOMA
     Route: 048

REACTIONS (1)
  - HYPONATRAEMIA [None]
